FAERS Safety Report 5388905-9 (Version None)
Quarter: 2007Q3

REPORT INFORMATION
  Report Type: 
  Country: None (occurrence: None)
  Receive Date: 20070717
  Receipt Date: 20070710
  Transmission Date: 20080115
  Serious: Yes (Hospitalization, Other)
  Sender: FDA-Public Use
  Company Number: HQWYE989610JUL07

PATIENT
  Age: 81 Year
  Sex: Male

DRUGS (4)
  1. AMIODARONE HCL [Suspect]
     Route: 048
     Dates: end: 20070505
  2. AMINOPHYLLINE [Concomitant]
  3. PENTOXIFYLLINE [Concomitant]
  4. TRIMETAZIDINE [Concomitant]
     Route: 048

REACTIONS (6)
  - CARDIAC MURMUR [None]
  - CORNEAL DEPOSITS [None]
  - PULMONARY FIBROSIS [None]
  - SYNCOPE [None]
  - TORSADE DE POINTES [None]
  - URINARY RETENTION [None]
